FAERS Safety Report 7342070-7 (Version None)
Quarter: 2011Q1

REPORT INFORMATION
  Report Type: 
  Country: None (occurrence: None)
  Receive Date: 20110309
  Receipt Date: 20110228
  Transmission Date: 20110831
  Serious: Yes (Other)
  Sender: FDA-Public Use
  Company Number: RU-ASTRAZENECA-2011SE11237

PATIENT
  Sex: Female
  Weight: 75 kg

DRUGS (4)
  1. BETALOC ZOK [Suspect]
     Indication: HYPERTENSION
     Route: 048
     Dates: start: 20080101, end: 20101101
  2. CEREBROLYSIN [Concomitant]
  3. GLIATILIN [Concomitant]
  4. BETALOC ZOK [Suspect]
     Indication: HEART RATE
     Route: 048
     Dates: start: 20080101, end: 20101101

REACTIONS (1)
  - HEART RATE DECREASED [None]
